FAERS Safety Report 14388639 (Version 1)
Quarter: 2018Q1

REPORT INFORMATION
  Report Type: Spontaneous
  Country: US (occurrence: US)
  Receive Date: 20180115
  Receipt Date: 20180115
  Transmission Date: 20180509
  Serious: Yes (Other)
  Sender: FDA-Public Use
  Company Number: US-SA-2017SA216970

PATIENT
  Age: 79 Year
  Sex: Female
  Weight: 54 kg

DRUGS (13)
  1. PRAVASTATIN. [Concomitant]
     Active Substance: PRAVASTATIN
     Route: 065
     Dates: start: 20080219
  2. TAXOTERE [Suspect]
     Active Substance: DOCETAXEL
     Indication: BREAST CANCER FEMALE
     Route: 051
     Dates: start: 20081105, end: 20081105
  3. ZOCOR [Concomitant]
     Active Substance: SIMVASTATIN
     Route: 065
     Dates: start: 19981101, end: 20081101
  4. VITAMIN D2 [Concomitant]
     Active Substance: ERGOCALCIFEROL
     Route: 065
     Dates: start: 20100606
  5. FLONASE [Concomitant]
     Active Substance: FLUTICASONE PROPIONATE
     Route: 065
     Dates: start: 20100606
  6. IBUPROFEN. [Concomitant]
     Active Substance: IBUPROFEN
     Route: 065
     Dates: start: 20100606
  7. CLARITIN [Concomitant]
     Active Substance: LORATADINE
     Route: 065
     Dates: start: 20100616
  8. VITAMIN C [Concomitant]
     Active Substance: ASCORBIC ACID
     Route: 065
     Dates: start: 20100606
  9. ASPIRIN. [Concomitant]
     Active Substance: ASPIRIN
     Route: 065
     Dates: start: 20100616
  10. PRIMIDONE. [Concomitant]
     Active Substance: PRIMIDONE
     Route: 065
     Dates: start: 20060101
  11. TAXOTERE [Suspect]
     Active Substance: DOCETAXEL
     Indication: BREAST CANCER FEMALE
     Route: 051
     Dates: start: 20090218, end: 20090218
  12. EVISTA [Concomitant]
     Active Substance: RALOXIFENE HYDROCHLORIDE
     Route: 065
     Dates: start: 19980103, end: 20081101
  13. VITAMIN E [Concomitant]
     Active Substance: .ALPHA.-TOCOPHEROL
     Route: 065
     Dates: start: 20100606

REACTIONS (6)
  - Emotional distress [Unknown]
  - Alopecia [Not Recovered/Not Resolved]
  - Anxiety [Unknown]
  - Pain [Unknown]
  - Impaired quality of life [Unknown]
  - Psychological trauma [Unknown]

NARRATIVE: CASE EVENT DATE: 20170309
